FAERS Safety Report 8256248-1 (Version None)
Quarter: 2012Q2

REPORT INFORMATION
  Report Type: 
  Country: None (occurrence: None)
  Receive Date: 20120403
  Receipt Date: 20120322
  Transmission Date: 20120825
  Serious: Yes (Other)
  Sender: FDA-Public Use
  Company Number: IE-ELI_LILLY_AND_COMPANY-IE201203007691

PATIENT
  Age: 65 Year
  Sex: Male

DRUGS (2)
  1. METFORMIN HCL [Interacting]
     Indication: DIABETES MELLITUS
  2. ALIMTA [Suspect]
     Indication: BLADDER CANCER
     Dosage: UNK

REACTIONS (2)
  - DRUG INTERACTION [None]
  - PANCYTOPENIA [None]
